FAERS Safety Report 23276231 (Version 1)
Quarter: 2023Q4

REPORT INFORMATION
  Report Type: Report from Study
  Country: US (occurrence: US)
  Receive Date: 20231208
  Receipt Date: 20231208
  Transmission Date: 20240110
  Serious: Yes (Other)
  Sender: FDA-Public Use
  Company Number: US-ABBVIE-5529491

PATIENT
  Sex: Female

DRUGS (1)
  1. CREON [Suspect]
     Active Substance: PANCRELIPASE AMYLASE\PANCRELIPASE LIPASE\PANCRELIPASE PROTEASE
     Indication: Product used for unknown indication
     Dosage: 24,000 UNITS CAPSULE 3 CAPSULES BY MOUTH WITH EACH MEAL AND 2 TO 3 CAPSULES WITH EACH SNACK, CREO...
     Route: 048

REACTIONS (1)
  - Cerebrovascular accident [Unknown]
